FAERS Safety Report 16735398 (Version 2)
Quarter: 2019Q4

REPORT INFORMATION
  Report Type: Spontaneous
  Country: CA (occurrence: CA)
  Receive Date: 20190823
  Receipt Date: 20191205
  Transmission Date: 20200122
  Serious: Yes (Other)
  Sender: FDA-Public Use
  Company Number: CA-PFIZER INC-2019358374

PATIENT
  Age: 56 Year
  Sex: Female

DRUGS (6)
  1. AROMASIN [Suspect]
     Active Substance: EXEMESTANE
     Dosage: 25 MG, 1X/DAY
     Route: 065
  2. PANTOLOC [PANTOPRAZOLE SODIUM SESQUIHYDRATE] [Concomitant]
     Active Substance: PANTOPRAZOLE SODIUM
     Indication: PRODUCT USED FOR UNKNOWN INDICATION
     Dosage: UNK
     Route: 065
  3. VENLAFAXINE HYDROCHLORIDE. [Concomitant]
     Active Substance: VENLAFAXINE HYDROCHLORIDE
     Dosage: 150 MG, 1X/DAY
     Route: 065
  4. AFINITOR [Suspect]
     Active Substance: EVEROLIMUS
     Indication: BREAST CANCER
     Dosage: 10 MG, 1X/DAY
     Route: 048
     Dates: start: 20151222, end: 20160105
  5. MOTILIUM [Concomitant]
     Active Substance: DOMPERIDONE
     Dosage: UNK
     Route: 065
  6. NORVASC [Concomitant]
     Active Substance: AMLODIPINE BESYLATE
     Dosage: 1.5 DF, 1X/DAY
     Route: 065

REACTIONS (15)
  - Toothache [Unknown]
  - Feeding disorder [Recovering/Resolving]
  - Oral mucosal erythema [Unknown]
  - Dysphagia [Unknown]
  - Stomatitis [Unknown]
  - Bone disorder [Unknown]
  - Headache [Unknown]
  - Mouth ulceration [Recovering/Resolving]
  - Anxiety [Unknown]
  - Palatal swelling [Unknown]
  - Tongue abscess [Unknown]
  - Gingival pain [Unknown]
  - Dyspnoea [Unknown]
  - Glossodynia [Unknown]
  - Pain [Recovering/Resolving]
